FAERS Safety Report 19527072 (Version 1)
Quarter: 2021Q3

REPORT INFORMATION
  Report Type: Spontaneous
  Country: US (occurrence: US)
  Receive Date: 20210713
  Receipt Date: 20210713
  Transmission Date: 20211014
  Serious: No
  Sender: FDA-Public Use
  Company Number: US-MILLICENT HOLDINGS LTD.-MILL20210687

PATIENT
  Age: 57 Year
  Sex: Female

DRUGS (2)
  1. INTRAROSA [Suspect]
     Active Substance: PRASTERONE
     Indication: DYSPAREUNIA
     Dosage: UNKNOWN
     Route: 067
  2. INTRAROSA [Suspect]
     Active Substance: PRASTERONE
     Dosage: HALF OF A VAGINAL INSERT
     Route: 067
     Dates: start: 20210608, end: 20210624

REACTIONS (3)
  - Application site discharge [Not Recovered/Not Resolved]
  - Contraindicated product administered [None]
  - Off label use [Recovered/Resolved]

NARRATIVE: CASE EVENT DATE: 2021
